FAERS Safety Report 25934089 (Version 1)
Quarter: 2025Q4

REPORT INFORMATION
  Report Type: Spontaneous
  Country: US (occurrence: US)
  Receive Date: 20251017
  Receipt Date: 20251017
  Transmission Date: 20260117
  Serious: No
  Sender: RANBAXY
  Company Number: US-SUN PHARMACEUTICAL INDUSTRIES LTD-2025R1-524333

PATIENT
  Sex: Female

DRUGS (1)
  1. TECHNETIUM TC-99M MEDRONATE [Suspect]
     Active Substance: TECHNETIUM TC-99M MEDRONATE
     Indication: Product used for unknown indication
     Dosage: UNK
     Route: 065

REACTIONS (1)
  - Eye haemorrhage [Unknown]
